FAERS Safety Report 11179049 (Version 1)
Quarter: 2015Q2

REPORT INFORMATION
  Report Type: Spontaneous
  Country: US (occurrence: US)
  Receive Date: 20150610
  Receipt Date: 20150610
  Transmission Date: 20150821
  Serious: Yes (Other)
  Sender: FDA-Public Use
  Company Number: US-BAUSCH-BL-2015-014503

PATIENT
  Sex: Female

DRUGS (4)
  1. TETRACAINE [Suspect]
     Active Substance: TETRACAINE\TETRACAINE HYDROCHLORIDE
     Indication: PRODUCT USED FOR UNKNOWN INDICATION
     Route: 065
  2. LIDOCAINE. [Suspect]
     Active Substance: LIDOCAINE
     Indication: PRODUCT USED FOR UNKNOWN INDICATION
     Route: 065
  3. MORPHINE [Suspect]
     Active Substance: MORPHINE
     Indication: PRODUCT USED FOR UNKNOWN INDICATION
     Route: 065
  4. OXYBUTYNIN [Suspect]
     Active Substance: OXYBUTYNIN
     Indication: PRODUCT USED FOR UNKNOWN INDICATION
     Route: 065

REACTIONS (11)
  - Wheezing [Unknown]
  - Urticaria [Unknown]
  - Eyelid oedema [Unknown]
  - Dyspnoea [Unknown]
  - Pruritus [Unknown]
  - Rash generalised [Unknown]
  - Loss of consciousness [Unknown]
  - Anaphylactic shock [Unknown]
  - Swelling [Unknown]
  - Pharyngeal oedema [Unknown]
  - Swollen tongue [Unknown]
